FAERS Safety Report 21883574 (Version 1)
Quarter: 2023Q1

REPORT INFORMATION
  Report Type: Spontaneous
  Country: NL (occurrence: NL)
  Receive Date: 20230119
  Receipt Date: 20230119
  Transmission Date: 20230418
  Serious: Yes (Hospitalization, Disabling)
  Sender: FDA-Public Use
  Company Number: NL-TEVA-2023-NL-2847217

PATIENT
  Sex: Female
  Weight: 80 kg

DRUGS (2)
  1. DROSPIRENONE\ETHINYL ESTRADIOL [Suspect]
     Active Substance: DROSPIRENONE\ETHINYL ESTRADIOL
     Indication: Heavy menstrual bleeding
     Dosage: (ETHINYLESTRADIOL 20 MICROGRAM, DROSPIRENONE 3MG)
     Route: 065
     Dates: start: 20080506
  2. ZOMIG [Suspect]
     Active Substance: ZOLMITRIPTAN
     Indication: Migraine with aura
     Dosage: 2.5 MILLIGRAM AS NECESSARY ONE AS NEEDED EENMALIG Z.N.
     Route: 065
     Dates: start: 20150101

REACTIONS (3)
  - Cerebral infarction [Recovering/Resolving]
  - Hemiparesis [Recovering/Resolving]
  - Hemianopia [Not Recovered/Not Resolved]
